FAERS Safety Report 11148293 (Version 2)
Quarter: 2015Q2

REPORT INFORMATION
  Report Type: Spontaneous
  Country: US (occurrence: US)
  Receive Date: 20150529
  Receipt Date: 20150623
  Transmission Date: 20150821
  Serious: Yes (Other)
  Sender: FDA-Public Use
  Company Number: US-BAYER-2015-278146

PATIENT
  Age: 53 Year
  Sex: Female

DRUGS (1)
  1. MIRENA [Suspect]
     Active Substance: LEVONORGESTREL
     Indication: MENORRHAGIA
     Dosage: 20 MCG/24HR, CONT
     Route: 015
     Dates: start: 20141223

REACTIONS (9)
  - Vaginal haemorrhage [None]
  - Dysmenorrhoea [None]
  - Dysmenorrhoea [None]
  - Pre-existing condition improved [None]
  - Vaginal haemorrhage [None]
  - Vaginal haemorrhage [None]
  - Drug ineffective [None]
  - Genital haemorrhage [None]
  - Menorrhagia [None]

NARRATIVE: CASE EVENT DATE: 20150108
